FAERS Safety Report 4683215-7 (Version None)
Quarter: 2005Q2

REPORT INFORMATION
  Report Type: 
  Country: None (occurrence: None)
  Receive Date: 20050602
  Receipt Date: 20050131
  Transmission Date: 20051028
  Serious: No
  Sender: FDA-Public Use
  Company Number: USA050289579

PATIENT
  Age: 44 Year
  Sex: Female
  Weight: 91 kg

DRUGS (2)
  1. CYMBALTA [Suspect]
     Indication: DEPRESSION
     Dosage: 30 MG DAY
     Dates: start: 20050129
  2. MULTI-VITAMINS [Concomitant]

REACTIONS (4)
  - DIARRHOEA [None]
  - FAECAL INCONTINENCE [None]
  - FEAR [None]
  - NAUSEA [None]
